FAERS Safety Report 16868497 (Version 2)
Quarter: 2019Q4

REPORT INFORMATION
  Report Type: Spontaneous
  Country: US (occurrence: US)
  Receive Date: 20190930
  Receipt Date: 20191105
  Transmission Date: 20200122
  Serious: No
  Sender: FDA-Public Use
  Company Number: US-PFIZER INC-2019418861

PATIENT
  Age: 56 Year
  Sex: Female

DRUGS (1)
  1. NICOTROL [Suspect]
     Active Substance: NICOTINE
     Indication: SMOKING CESSATION THERAPY
     Dosage: AS NEEDED (BEFORE BED  AS NEEDED)
     Route: 055

REACTIONS (2)
  - Pyrexia [Unknown]
  - Product prescribing error [Unknown]
